FAERS Safety Report 7250525-9 (Version None)
Quarter: 2011Q1

REPORT INFORMATION
  Report Type: 
  Country: None (occurrence: None)
  Receive Date: 20110128
  Receipt Date: 20110118
  Transmission Date: 20110831
  Serious: Yes (Disabling)
  Sender: FDA-Public Use
  Company Number: PHHY2011TH04241

PATIENT
  Age: 66 Year
  Sex: Female

DRUGS (3)
  1. TRAMADOL [Concomitant]
  2. HEPSERA [Concomitant]
  3. ACLASTA [Suspect]
     Indication: OSTEOPOROSIS
     Dates: start: 20101101

REACTIONS (6)
  - DYSSTASIA [None]
  - PAIN [None]
  - BACK PAIN [None]
  - GAIT DISTURBANCE [None]
  - MUSCULOSKELETAL CHEST PAIN [None]
  - MUSCULAR WEAKNESS [None]
